FAERS Safety Report 7314374-5 (Version None)
Quarter: 2011Q1

REPORT INFORMATION
  Report Type: 
  Country: None (occurrence: None)
  Receive Date: 20110225
  Receipt Date: 20100907
  Transmission Date: 20110831
  Serious: No
  Sender: FDA-Public Use
  Company Number: US-MYLANLABS-2010S1014109

PATIENT
  Age: 17 Year
  Sex: Male

DRUGS (1)
  1. AMNESTEEM [Suspect]
     Indication: ACNE CYSTIC
     Route: 048
     Dates: start: 20100521, end: 20100610

REACTIONS (2)
  - NAUSEA [None]
  - ABDOMINAL PAIN UPPER [None]
